FAERS Safety Report 17272907 (Version 1)
Quarter: 2020Q1

REPORT INFORMATION
  Report Type: Spontaneous
  Country: US (occurrence: US)
  Receive Date: 20200115
  Receipt Date: 20200115
  Transmission Date: 20200409
  Serious: Yes (Death, Hospitalization)
  Sender: FDA-Public Use
  Company Number: US-PFIZER INC-2020013626

PATIENT
  Age: 77 Year
  Sex: Male

DRUGS (1)
  1. VENLAFAXINE HCL [Suspect]
     Active Substance: VENLAFAXINE HYDROCHLORIDE
     Dosage: 150 MG, UNK
     Route: 048

REACTIONS (6)
  - Status epilepticus [Fatal]
  - Toxicity to various agents [Fatal]
  - Electrocardiogram abnormal [Fatal]
  - Cardiac arrest [Fatal]
  - Completed suicide [Fatal]
  - Shock [Fatal]

NARRATIVE: CASE EVENT DATE: 2018
